FAERS Safety Report 4470416-6 (Version None)
Quarter: 2004Q3

REPORT INFORMATION
  Report Type: 
  Country: None (occurrence: None)
  Receive Date: 20040909
  Receipt Date: 20040709
  Transmission Date: 20050211
  Serious: No
  Sender: FDA-Public Use
  Company Number: US-JNJFOC-20040100579

PATIENT
  Age: 83 Year
  Sex: Female
  Weight: 85.7298 kg

DRUGS (6)
  1. NESIRITIDE (NESIRITIDE) INJECTION [Suspect]
     Indication: CARDIAC FAILURE CONGESTIVE
     Dosage: 172.2 UQ, INTRAVENOUS BOLUS
     Route: 040
     Dates: start: 20031217, end: 20031217
  2. NESIRITIDE (NESIRITIDE) INJECTION [Suspect]
     Indication: CARDIAC FAILURE CONGESTIVE
     Dosage: 309.6 UG INTRAVENOUS DRIP
     Route: 041
     Dates: start: 20031217, end: 20031217
  3. ASPIRIN [Concomitant]
  4. LEVOTHROID [Concomitant]
  5. BETA BLOCKER [Concomitant]
  6. ACE INHIBITOR [Concomitant]

REACTIONS (3)
  - FATIGUE [None]
  - MUSCULAR WEAKNESS [None]
  - MYALGIA [None]
